FAERS Safety Report 8669419 (Version 2)
Quarter: 2012Q4

REPORT INFORMATION
  Report Type: 
  Country: DE (occurrence: DE)
  Receive Date: 20120717
  Receipt Date: 20121101
  Transmission Date: 20130627
  Serious: Yes (Hospitalization)
  Sender: FDA-Public Use
  Company Number: DE-AMGEN-DEUSP2012043736

PATIENT
  Age: 63 Year
  Sex: Male
  Weight: 91 kg

DRUGS (1)
  1. NPLATE [Suspect]
     Indication: IDIOPATHIC THROMBOCYTOPENIC PURPURA
     Dosage: 100 mug, UNK
     Route: 042
     Dates: start: 20111221, end: 20111228

REACTIONS (1)
  - Haemolytic anaemia [Not Recovered/Not Resolved]
